FAERS Safety Report 8896146 (Version 1)
Quarter: 2012Q4

REPORT INFORMATION
  Report Type: 
  Country: CA (occurrence: CA)
  Receive Date: 20121108
  Receipt Date: 20121108
  Transmission Date: 20130627
  Serious: Yes (Disabling)
  Sender: FDA-Public Use
  Company Number: CA-ASTRAZENECA-2012SE83226

PATIENT
  Age: 74 Year
  Sex: Female
  Weight: 88.5 kg

DRUGS (1)
  1. NEXIUM [Suspect]
     Route: 048

REACTIONS (12)
  - Asthenia [Recovered/Resolved]
  - Blood pressure increased [Recovered/Resolved]
  - Dyspnoea [Recovered/Resolved]
  - Immune system disorder [Recovered/Resolved]
  - Impaired healing [Recovered/Resolved]
  - Nail disorder [Recovered/Resolved]
  - Oral herpes [Recovered/Resolved]
  - Pain in extremity [Recovered/Resolved]
  - Poor quality sleep [Recovered/Resolved]
  - Dizziness [Recovered/Resolved]
  - Arthralgia [Recovered/Resolved]
  - Pruritus [Recovered/Resolved]
